FAERS Safety Report 17410064 (Version 1)
Quarter: 2020Q1

REPORT INFORMATION
  Report Type: Spontaneous
  Country: TR (occurrence: TR)
  Receive Date: 20200212
  Receipt Date: 20200212
  Transmission Date: 20200409
  Serious: Yes (Hospitalization, Other)
  Sender: FDA-Public Use
  Company Number: TR-AVION PHARMACEUTICALS, LLC-2080214

PATIENT
  Age: 22 Year
  Sex: Female

DRUGS (1)
  1. GLOPERBA [Suspect]
     Active Substance: COLCHICINE
     Indication: SUICIDE ATTEMPT
     Route: 065

REACTIONS (5)
  - Pancreatitis acute [Recovering/Resolving]
  - Hepatic enzyme increased [Recovering/Resolving]
  - Vomiting [Recovering/Resolving]
  - Abdominal pain upper [Recovering/Resolving]
  - Nausea [Recovering/Resolving]
